FAERS Safety Report 7185129-X (Version None)
Quarter: 2010Q4

REPORT INFORMATION
  Report Type: 
  Country: None (occurrence: None)
  Receive Date: 20101123
  Receipt Date: 20101007
  Transmission Date: 20110411
  Serious: No
  Sender: FDA-Public Use
  Company Number: 020036

PATIENT
  Sex: Male

DRUGS (6)
  1. CIMZIA [Suspect]
     Indication: CROHN'S DISEASE
     Dosage: (400 MG 1X/MONTH SUBCUTANEOUS)
     Route: 058
     Dates: start: 20100501, end: 20100801
  2. PENTASA [Concomitant]
  3. MERCAPTOPURINE [Concomitant]
  4. FLAGYL [Concomitant]
  5. PREDNISONE [Concomitant]
  6. LOPERAMIDE [Concomitant]

REACTIONS (1)
  - DRUG INEFFECTIVE [None]
